FAERS Safety Report 6901479-3 (Version None)
Quarter: 2010Q3

REPORT INFORMATION
  Report Type: 
  Country: None (occurrence: None)
  Receive Date: 20100803
  Receipt Date: 20080207
  Transmission Date: 20110219
  Serious: No
  Sender: FDA-Public Use
  Company Number: US-PFIZER INC-2008013200

PATIENT
  Sex: Male

DRUGS (2)
  1. LYRICA [Suspect]
     Indication: BACK PAIN
     Dates: start: 20070928
  2. LYRICA [Suspect]
     Indication: MUSCULOSKELETAL PAIN

REACTIONS (1)
  - URINARY INCONTINENCE [None]
